FAERS Safety Report 9107295 (Version 2)
Quarter: 2013Q2

REPORT INFORMATION
  Report Type: Report from Study
  Country: US (occurrence: US)
  Receive Date: 20130221
  Receipt Date: 20130425
  Transmission Date: 20140414
  Serious: Yes (Hospitalization, Other)
  Sender: FDA-Public Use
  Company Number: US-BRISTOL-MYERS SQUIBB COMPANY-17383571

PATIENT
  Age: 33 Year
  Sex: Male
  Weight: 81 kg

DRUGS (10)
  1. SPRYCEL [Suspect]
     Indication: ACUTE LYMPHOCYTIC LEUKAEMIA
     Dosage: LAST DOSE: 11 JAN 2013?630MG?LAST DOSE:14FEB2013
     Dates: start: 20120928
  2. MESNA [Suspect]
     Dosage: LAST DOSE:14JAN13
  3. CYTARABINE [Suspect]
     Dosage: LAST DOSE: 18DEC2012,09FEB2013?TOTAL DOSE:27000MG
  4. LEUCOVORIN CALCIUM [Suspect]
     Dosage: TOTAL DOSE:225MG?LAST DOSE:10FEB13
     Dates: start: 20121218
  5. METHOTREXATE [Suspect]
     Dosage: LAST DOSE: 15DEC2012,02FEB12,07FEB13?TOTAL DOSE:2250MG
  6. PREDNISONE [Suspect]
     Dosage: LAST DOSE: 18DEC2012,09FEB2013
  7. CYCLOPHOSPHAMIDE [Suspect]
  8. DEXAMETHASONE [Suspect]
     Dosage: LAST DOSE:27JAN13
  9. DOXORUBICIN [Suspect]
     Dosage: LAST DOSE:15JAN13
  10. VINCRISTINE SULFATE [Suspect]
     Dosage: LAST DOSE:24JAN13

REACTIONS (5)
  - Sinusitis [Recovered/Resolved]
  - Anaemia [Recovering/Resolving]
  - Febrile neutropenia [Recovered/Resolved]
  - Platelet count decreased [Recovering/Resolving]
  - Petechiae [Unknown]
